FAERS Safety Report 12182169 (Version 1)
Quarter: 2016Q1

REPORT INFORMATION
  Report Type: Other
  Country: JP (occurrence: JP)
  Receive Date: 20160316
  Receipt Date: 20160316
  Transmission Date: 20160526
  Serious: Yes (Life-Threatening)
  Sender: FDA-Public Use
  Company Number: JP-JUBILANT GENERICS LIMITED-1049136

PATIENT
  Age: 93 Year
  Sex: Female

DRUGS (2)
  1. ANTIHYPERTENSIVE AGENT [Concomitant]
  2. QUETIAPINE FUMARATE. [Suspect]
     Active Substance: QUETIAPINE FUMARATE

REACTIONS (5)
  - Hypotension [Recovered/Resolved]
  - Respiratory disorder [Recovered/Resolved]
  - Bradycardia [Recovered/Resolved]
  - Altered state of consciousness [Recovered/Resolved]
  - Ventricular extrasystoles [Recovered/Resolved]

NARRATIVE: CASE EVENT DATE: 20160301
